FAERS Safety Report 4885748-7 (Version None)
Quarter: 2006Q1

REPORT INFORMATION
  Report Type: 
  Country: None (occurrence: None)
  Receive Date: 20060117
  Receipt Date: 20060102
  Transmission Date: 20060701
  Serious: Yes (Life-Threatening, Other)
  Sender: FDA-Public Use
  Company Number: 2006000915

PATIENT
  Sex: Male

DRUGS (1)
  1. LYRICA [Suspect]
     Indication: ILL-DEFINED DISORDER

REACTIONS (1)
  - CARDIAC ARREST [None]
